FAERS Safety Report 7488586-4 (Version None)
Quarter: 2011Q2

REPORT INFORMATION
  Report Type: 
  Country: None (occurrence: None)
  Receive Date: 20110518
  Receipt Date: 20091113
  Transmission Date: 20111010
  Serious: Yes (Death, Other)
  Sender: FDA-Public Use
  Company Number: US-BAYER-200939672NA

PATIENT
  Age: 79 Year
  Sex: Male
  Weight: 74.83 kg

DRUGS (28)
  1. ACETYLSALICYLIC ACID SRT [Concomitant]
     Dosage: 81 MG, QD
     Route: 048
  2. TERAZOSIN HCL [Concomitant]
     Dosage: 2 MG, QD
     Route: 048
  3. LEVAQUIN [Concomitant]
     Dosage: UNK
     Dates: start: 20070520
  4. FUROSEMIDE [Concomitant]
     Dosage: 40 MG, BID
     Route: 048
  5. PROPOXYPHENE NAPSYLATE W/ ACETAMINOPHEN [Concomitant]
     Dosage: 100/450 AS NEEDED
     Route: 048
  6. ANCEF [Concomitant]
     Dosage: 1 GRAM
     Route: 042
  7. AMIODARONE HCL [Concomitant]
     Dosage: UNK
     Route: 042
     Dates: start: 20070522
  8. METFORMIN HCL [Concomitant]
     Dosage: 500 MG, BID
     Route: 048
  9. ENALAPRIL MALEATE [Concomitant]
     Dosage: 5 MG, QD
     Route: 048
  10. HEPARIN [Concomitant]
     Dosage: 25000
     Route: 042
     Dates: start: 20070517
  11. REGULAR INSULIN [Concomitant]
     Dosage: UNK
     Dates: start: 20070517
  12. GENTAMYCIN SULFATE [Concomitant]
     Dosage: 100 MG, UNK
     Route: 042
  13. RED BLOOD CELLS [Concomitant]
     Dosage: 8 UNITS
     Route: 042
     Dates: start: 20070517
  14. PLASMA [Concomitant]
     Dosage: 4 UNITS
     Route: 042
     Dates: start: 20070517
  15. ARGATROBAN [Concomitant]
     Dosage: UNK
     Dates: start: 20070521
  16. TRASYLOL [Suspect]
     Dosage: 200 ML CARDIOPULMONARY BYPASS PRIME
     Route: 042
     Dates: start: 20070517, end: 20070517
  17. GLIPIZIDE [Concomitant]
     Dosage: 5 MG, BID
     Route: 048
  18. POTASSIUM CHLORIDE [Concomitant]
     Dosage: 20 MILLIEQUIVALENTS
     Route: 042
     Dates: start: 20070517
  19. PLATELETS [Concomitant]
     Dosage: 10 UNITS
     Route: 042
     Dates: start: 20070517
  20. LOVASTATIN [Concomitant]
     Dosage: 40 MG, QD
     Route: 048
  21. ETODOLAC [Concomitant]
     Dosage: 400 MG, BID
     Route: 048
  22. VANCOMYCIN [Concomitant]
     Dosage: 1 GRAM
     Route: 042
     Dates: start: 20070517
  23. CALCIUM CHLORIDE [Concomitant]
     Dosage: 1 GRAM
     Dates: start: 20070517
  24. TRASYLOL [Suspect]
     Indication: AORTIC VALVE REPLACEMENT
     Dosage: 1ML INITIAL LOADING DOSE
     Route: 042
     Dates: start: 20070517, end: 20070517
  25. TRASYLOL [Suspect]
     Dosage: 200CC LOADING DOSE THEN 50CC/HOUR
     Dates: start: 20070517, end: 20070517
  26. SODIUM BICARBONATE [Concomitant]
     Dosage: 50 MILLIEQUIVALENTS
     Dates: start: 20070517
  27. BUMEX [Concomitant]
     Dosage: UNK
     Dates: start: 20070519
  28. AZACTAM [Concomitant]
     Dosage: UNK
     Dates: start: 20070521

REACTIONS (13)
  - UNEVALUABLE EVENT [None]
  - PAIN [None]
  - DEATH [None]
  - ANXIETY [None]
  - INJURY [None]
  - EMOTIONAL DISTRESS [None]
  - MULTI-ORGAN FAILURE [None]
  - RENAL INJURY [None]
  - RENAL FAILURE [None]
  - STRESS [None]
  - ANHEDONIA [None]
  - RENAL IMPAIRMENT [None]
  - FEAR [None]
